FAERS Safety Report 8950149 (Version 1)
Quarter: 2012Q4

REPORT INFORMATION
  Report Type: 
  Country: US (occurrence: US)
  Receive Date: 20121205
  Receipt Date: 20121205
  Transmission Date: 20130627
  Serious: Yes (Hospitalization)
  Sender: FDA-Public Use
  Company Number: US-ASTELLAS-2012US002902

PATIENT
  Age: 67 Year
  Sex: Male

DRUGS (5)
  1. TARCEVA [Suspect]
     Indication: NON-SMALL CELL LUNG CANCER METASTATIC
     Dosage: 150 mg, UID/QD
     Route: 048
     Dates: start: 20120217
  2. METOPROLOL [Concomitant]
     Indication: CORONARY ARTERY DISEASE
     Dosage: 50 mg, UID/QD
     Route: 048
  3. METOPROLOL [Concomitant]
     Dosage: 75 mg, UID/QD
     Route: 048
     Dates: start: 20120319
  4. ASPIRIN [Concomitant]
     Indication: PRODUCT USED FOR UNKNOWN INDICATION
     Dosage: 81 mg, UID/QD
     Route: 048
  5. CALCIUM [Concomitant]
     Indication: PRODUCT USED FOR UNKNOWN INDICATION
     Dosage: 7 mg, UID/QD
     Route: 048

REACTIONS (4)
  - Pancreatitis acute [Recovered/Resolved]
  - Bundle branch block right [Unknown]
  - Tachycardia [Not Recovered/Not Resolved]
  - Rash [Unknown]
